FAERS Safety Report 7346267-1 (Version None)
Quarter: 2011Q1

REPORT INFORMATION
  Report Type: 
  Country: None (occurrence: None)
  Receive Date: 20110311
  Receipt Date: 20110307
  Transmission Date: 20110831
  Serious: No
  Sender: FDA-Public Use
  Company Number: US-PFIZER INC-2011050127

PATIENT
  Sex: Male
  Weight: 86.168 kg

DRUGS (2)
  1. DILANTIN-125 [Suspect]
     Indication: MENINGIOMA
     Dosage: 300 MG, DAILY
     Route: 048
     Dates: start: 19830101
  2. DOXAZOSIN [Concomitant]
     Dosage: UNK

REACTIONS (1)
  - ANTICONVULSANT DRUG LEVEL INCREASED [None]
